FAERS Safety Report 8817870 (Version 2)
Quarter: 2013Q4

REPORT INFORMATION
  Report Type: Spontaneous
  Country: JP (occurrence: JP)
  Receive Date: 20121004
  Receipt Date: 20131119
  Transmission Date: 20140711
  Serious: Yes (Other)
  Sender: FDA-Public Use
  Company Number: JP-ROCHE-1136330

PATIENT
  Age: 60 Year
  Sex: Male

DRUGS (12)
  1. AVASTIN [Suspect]
     Indication: COLON CANCER RECURRENT
     Dosage: UNCERTAIN DOSAGE AND ONE COURSE
     Route: 041
     Dates: start: 20100324, end: 20100324
  2. AVASTIN [Suspect]
     Indication: COLON CANCER RECURRENT
     Dosage: DOSAGE IS UNCERTAIN.
     Route: 041
     Dates: start: 2010, end: 20110803
  3. ELPLAT [Suspect]
     Indication: COLON CANCER RECURRENT
     Dosage: UNCERTAIN DOSAGE AND TWO COURSES
     Route: 041
     Dates: start: 201002, end: 20100324
  4. ELPLAT [Suspect]
     Indication: COLON CANCER RECURRENT
     Dosage: UNCERTAIN DOSAGE AND ONE COURSE
     Route: 041
     Dates: start: 2010, end: 20110803
  5. LEVOFOLINATE [Suspect]
     Indication: COLON CANCER RECURRENT
     Dosage: DOSAGE UNCERTAIN
     Route: 041
     Dates: start: 201002, end: 201003
  6. LEVOFOLINATE [Suspect]
     Indication: COLON CANCER RECURRENT
     Dosage: DOSAGE UNCERTAIN
     Route: 041
     Dates: start: 2010, end: 201108
  7. 5-FU [Suspect]
     Indication: COLON CANCER RECURRENT
     Dosage: UNCERTAIN DOSAGE AND TWO COURSES
     Route: 040
     Dates: start: 201002, end: 201003
  8. 5-FU [Suspect]
     Indication: COLON CANCER RECURRENT
     Dosage: UNCERTAIN DOSAGE AND TWO COURSES
     Route: 041
     Dates: start: 201002, end: 201003
  9. 5-FU [Suspect]
     Indication: COLON CANCER RECURRENT
     Dosage: UNCERTAIN DOSAGE AND ONE COURSE
     Route: 040
     Dates: start: 2010, end: 201108
  10. 5-FU [Suspect]
     Indication: COLON CANCER RECURRENT
     Dosage: UNCERTAIN DOSAGE AND ONE COURSE
     Route: 041
     Dates: start: 2010, end: 201008
  11. 5-FU [Suspect]
     Indication: COLON CANCER RECURRENT
  12. 5-FU [Suspect]
     Indication: COLON CANCER RECURRENT

REACTIONS (4)
  - Iliac artery occlusion [Unknown]
  - Mechanical ileus [Unknown]
  - Graft infection [Unknown]
  - Device related infection [Unknown]
